FAERS Safety Report 7769386-4 (Version None)
Quarter: 2011Q3

REPORT INFORMATION
  Report Type: 
  Country: None (occurrence: None)
  Receive Date: 20110922
  Receipt Date: 20110408
  Transmission Date: 20111222
  Serious: No
  Sender: FDA-Public Use
  Company Number: US-ASTRAZENECA-2007UW16070

PATIENT
  Age: 42 Year
  Sex: Female
  Weight: 65.8 kg

DRUGS (15)
  1. SEROQUEL [Suspect]
     Route: 048
     Dates: start: 20080101
  2. CYMBALTA [Concomitant]
  3. SEROQUEL [Suspect]
     Indication: DEPRESSION
     Route: 048
  4. SEROQUEL [Suspect]
     Indication: SCHIZOPHRENIA
     Route: 048
  5. SEROQUEL [Suspect]
     Route: 048
  6. SEROQUEL [Suspect]
     Route: 048
  7. SEROQUEL [Suspect]
     Route: 048
     Dates: start: 20060101, end: 20080101
  8. SEROQUEL [Suspect]
     Route: 048
     Dates: start: 20080101
  9. NEXIUM [Suspect]
     Indication: GASTROOESOPHAGEAL REFLUX DISEASE
     Route: 048
  10. SEROQUEL [Suspect]
     Route: 048
  11. SEROQUEL [Suspect]
     Route: 048
     Dates: start: 20060101, end: 20080101
  12. SEROQUEL [Suspect]
     Route: 048
     Dates: start: 20080101
  13. SEROQUEL [Suspect]
     Indication: BIPOLAR DISORDER
     Route: 048
  14. VITAMIN TAB [Concomitant]
  15. SEROQUEL [Suspect]
     Route: 048
     Dates: start: 20060101, end: 20080101

REACTIONS (4)
  - EPISTAXIS [None]
  - CHEST PAIN [None]
  - BLOOD PRESSURE INCREASED [None]
  - RESTLESS LEGS SYNDROME [None]
